FAERS Safety Report 14089011 (Version 1)
Quarter: 2017Q4

REPORT INFORMATION
  Report Type: Spontaneous
  Country: FR (occurrence: FR)
  Receive Date: 20171013
  Receipt Date: 20171013
  Transmission Date: 20180321
  Serious: Yes (Hospitalization)
  Sender: FDA-Public Use
  Company Number: FR-PFIZER INC-2017435161

PATIENT
  Age: 58 Year
  Sex: Male

DRUGS (5)
  1. PACLITAXEL HOSPIRA [Suspect]
     Active Substance: PACLITAXEL
     Dosage: 150 MG, CYCLIC (CYCLE 2, DAY 15)
     Route: 042
     Dates: start: 20170921, end: 20170921
  2. METHYLPREDNISOLONE. [Concomitant]
     Active Substance: METHYLPREDNISOLONE
     Indication: PREMEDICATION
     Dosage: UNK
  3. PACLITAXEL HOSPIRA [Suspect]
     Active Substance: PACLITAXEL
     Dosage: CYCLE 2, DAY 8
     Route: 042
     Dates: start: 2017, end: 2017
  4. PACLITAXEL HOSPIRA [Suspect]
     Active Substance: PACLITAXEL
     Indication: THYROID CANCER
     Dosage: 150 MG, CYCLIC (CYCLE 2)
     Route: 042
     Dates: start: 20170806, end: 20170806
  5. CARBOPLATIN. [Concomitant]
     Active Substance: CARBOPLATIN
     Indication: THYROID CANCER
     Dosage: 940 MG, UNK (CYCLE 2)
     Dates: start: 20170806, end: 20170806

REACTIONS (2)
  - Dyspnoea [Recovered/Resolved]
  - Cardiomyopathy [Unknown]

NARRATIVE: CASE EVENT DATE: 20170922
